FAERS Safety Report 4535284-2 (Version None)
Quarter: 2004Q4

REPORT INFORMATION
  Report Type: 
  Country: None (occurrence: None)
  Receive Date: 20041214
  Receipt Date: 20041005
  Transmission Date: 20050328
  Serious: No
  Sender: FDA-Public Use
  Company Number: 2004238083US

PATIENT
  Sex: Female
  Weight: 61.2 kg

DRUGS (4)
  1. BEXTRA [Suspect]
     Indication: ARTHRITIS
     Dosage: 10 MG, QD
     Dates: start: 20020101
  2. BEXTRA [Suspect]
     Indication: ARTHRITIS
     Dosage: 10 MG, QD
     Dates: start: 20040101
  3. COUMADIN [Concomitant]
  4. ZOCOR [Concomitant]

REACTIONS (2)
  - DRUG INEFFECTIVE [None]
  - MOBILITY DECREASED [None]
